FAERS Safety Report 5930800-8 (Version None)
Quarter: 2008Q4

REPORT INFORMATION
  Report Type: 
  Country: None (occurrence: None)
  Receive Date: 20081022
  Receipt Date: 20081010
  Transmission Date: 20090506
  Serious: Yes (Other)
  Sender: FDA-Public Use
  Company Number: WAES 0701USA00261

PATIENT
  Age: 58 Year
  Sex: Male

DRUGS (2)
  1. PROPECIA [Suspect]
     Indication: ANDROGENETIC ALOPECIA
     Dosage: 1 MG/DAILY/PO
     Route: 048
     Dates: start: 19990803, end: 20000830
  2. BEXTRA [Concomitant]

REACTIONS (7)
  - ARTERIOSCLEROSIS CORONARY ARTERY [None]
  - BACK PAIN [None]
  - CARDIAC DISORDER [None]
  - ERECTILE DYSFUNCTION [None]
  - INCONTINENCE [None]
  - METASTASES TO LYMPH NODES [None]
  - PROSTATE CANCER [None]
